FAERS Safety Report 9551893 (Version 1)
Quarter: 2013Q3

REPORT INFORMATION
  Report Type: Spontaneous
  Country: US (occurrence: None)
  Receive Date: 20130923
  Receipt Date: 20130923
  Transmission Date: 20140515
  Serious: Yes (Other)
  Sender: FDA-Public Use
  Company Number: None

PATIENT
  Age: 66 Year
  Sex: Male
  Weight: 75.3 kg

DRUGS (15)
  1. ZYVOX [Suspect]
     Indication: PNEUMONIA
     Route: 042
     Dates: start: 20130915, end: 20130917
  2. PHENYLEPHRINE [Concomitant]
  3. ACETAMINOPHEN [Concomitant]
  4. IPRATROPIUM/ALBUTEROL NEBULIZATION [Concomitant]
  5. METOPROLOL [Concomitant]
  6. PANTOPRAZOLE [Concomitant]
  7. CIPROFLAXACIN [Concomitant]
  8. FAMOTIDINE [Concomitant]
  9. PIPERCILLIN./TAXOBACTAM [Concomitant]
  10. CEFEPIME [Concomitant]
  11. CYANOBALAMIN [Concomitant]
  12. DILTIAZEM [Concomitant]
  13. FOLIC ACID [Concomitant]
  14. HEPARIN [Concomitant]
  15. MORPHINE [Concomitant]

REACTIONS (2)
  - Thrombocytopenia [None]
  - Bone marrow failure [None]
